FAERS Safety Report 19100876 (Version 2)
Quarter: 2021Q4

REPORT INFORMATION
  Report Type: Report from Study
  Country: None (occurrence: PR)
  Receive Date: 20210407
  Receipt Date: 20211004
  Transmission Date: 20220303
  Serious: Yes (Other)
  Sender: FDA-Public Use
  Company Number: PR-ABBVIE-21K-131-3846797-00

PATIENT
  Age: 60 Year
  Sex: Female
  Weight: 99.43 kg

DRUGS (13)
  1. HUMIRA [Suspect]
     Active Substance: ADALIMUMAB
     Indication: Rheumatoid arthritis
     Route: 058
     Dates: start: 2009, end: 2018
  2. HUMIRA [Suspect]
     Active Substance: ADALIMUMAB
     Indication: Rheumatoid arthritis
     Route: 058
     Dates: start: 2018
  3. METHOTREXATE [Concomitant]
     Active Substance: METHOTREXATE
     Indication: Rheumatoid arthritis
     Route: 048
     Dates: start: 2007
  4. LOSARTAN [Concomitant]
     Active Substance: LOSARTAN
     Indication: Hypertension
     Dosage: 100/ 12.5MG
     Route: 048
  5. SIMVASTATIN [Concomitant]
     Active Substance: SIMVASTATIN
     Indication: Blood cholesterol abnormal
     Route: 048
  6. NEURONTIN [Concomitant]
     Active Substance: GABAPENTIN
     Indication: Pain
     Route: 048
  7. NEURONTIN [Concomitant]
     Active Substance: GABAPENTIN
     Indication: Muscle spasms
  8. NEURONTIN [Concomitant]
     Active Substance: GABAPENTIN
     Indication: Fibromyalgia
  9. MODERNA COVID-19 VACCINE [Concomitant]
     Active Substance: CX-024414
     Indication: COVID-19 immunisation
     Dosage: 1ST DOSE
     Route: 030
     Dates: start: 20210213, end: 20210213
  10. MODERNA COVID-19 VACCINE [Concomitant]
     Active Substance: CX-024414
     Dosage: 2ND DOSE
     Route: 030
     Dates: start: 20210316, end: 20210316
  11. FOLIC ACID [Concomitant]
     Active Substance: FOLIC ACID
     Indication: Bone disorder
  12. EFFEXOR [Concomitant]
     Active Substance: VENLAFAXINE HYDROCHLORIDE
     Indication: Depression
     Route: 048
     Dates: start: 2006
  13. BUSPIRONE [Concomitant]
     Active Substance: BUSPIRONE HYDROCHLORIDE
     Indication: Anxiety
     Route: 048
     Dates: start: 2014

REACTIONS (5)
  - Meniscus injury [Recovering/Resolving]
  - Osteoarthritis [Unknown]
  - Osteoarthritis [Not Recovered/Not Resolved]
  - Arthralgia [Unknown]
  - Pain in extremity [Unknown]

NARRATIVE: CASE EVENT DATE: 20160101
